FAERS Safety Report 17886799 (Version 2)
Quarter: 2020Q3

REPORT INFORMATION
  Report Type: Spontaneous
  Country: US (occurrence: US)
  Receive Date: 20200611
  Receipt Date: 20200713
  Transmission Date: 20201103
  Serious: Yes (Other)
  Sender: FDA-Public Use
  Company Number: US-PFIZER INC-2020226279

PATIENT
  Age: 49 Year
  Sex: Female
  Weight: 76.2 kg

DRUGS (1)
  1. FLAGYL [Suspect]
     Active Substance: METRONIDAZOLE\METRONIDAZOLE HYDROCHLORIDE
     Indication: CROHN^S DISEASE
     Dosage: UNK, SINGLE (IV ONCE)
     Route: 042
     Dates: start: 20200605, end: 20200605

REACTIONS (11)
  - Chapped lips [Recovering/Resolving]
  - Drug hypersensitivity [Recovering/Resolving]
  - Product use in unapproved indication [Unknown]
  - Pharyngeal swelling [Not Recovered/Not Resolved]
  - Throat tightness [Recovering/Resolving]
  - Lip swelling [Recovering/Resolving]
  - Swelling face [Unknown]
  - Off label use [Unknown]
  - Anaphylactic shock [Recovering/Resolving]
  - Swelling [Recovered/Resolved]
  - Dysphagia [Recovering/Resolving]

NARRATIVE: CASE EVENT DATE: 202006
